FAERS Safety Report 8322628-9 (Version None)
Quarter: 2012Q2

REPORT INFORMATION
  Report Type: 
  Country: None (occurrence: None)
  Receive Date: 20120430
  Receipt Date: 20120423
  Transmission Date: 20120825
  Serious: Yes (Hospitalization)
  Sender: FDA-Public Use
  Company Number: US-BAYER-2011-114300

PATIENT
  Age: 28 Year
  Sex: Female
  Weight: 52.154 kg

DRUGS (7)
  1. YASMIN [Suspect]
     Indication: PREMENSTRUAL SYNDROME
     Dosage: UNK
     Dates: start: 20081101, end: 20100701
  2. TRAZODONE HCL [Concomitant]
  3. SULFAMETHAZINE [Concomitant]
  4. HYDROCODONE BITARTRATE AND ACETAMINOPHEN [Concomitant]
  5. SERTRALINE HYDROCHLORIDE [Concomitant]
  6. PROMETHAZINE [Concomitant]
  7. CIPROFLOXACIN [Concomitant]

REACTIONS (2)
  - CHOLECYSTITIS ACUTE [None]
  - PAIN [None]
